FAERS Safety Report 11930040 (Version 1)
Quarter: 2016Q1

REPORT INFORMATION
  Report Type: Spontaneous
  Country: US (occurrence: None)
  Receive Date: 20160120
  Receipt Date: 20160120
  Transmission Date: 20160526
  Serious: Yes (Other)
  Sender: FDA-Public Use
  Company Number: None

PATIENT
  Age: 69 Year
  Sex: Female
  Weight: 72.58 kg

DRUGS (3)
  1. PREDNISOLONE ACETATE 1% EYE DROP 1% PACIFIC PHARMA [Suspect]
     Active Substance: PREDNISOLONE ACETATE
     Indication: POST PROCEDURAL INFLAMMATION
     Route: 047
     Dates: start: 20160114, end: 20160114
  2. ILEVRO 0.3% EYE DROPS [Concomitant]
  3. TOBRAMYCIN 0.3% EYE DROPS [Concomitant]

REACTIONS (2)
  - Instillation site irritation [None]
  - Instillation site pain [None]

NARRATIVE: CASE EVENT DATE: 20160114
